FAERS Safety Report 5766641-4 (Version None)
Quarter: 2008Q2

REPORT INFORMATION
  Report Type: 
  Country: None (occurrence: None)
  Receive Date: 20080609
  Receipt Date: 20080523
  Transmission Date: 20081010
  Serious: Yes (Hospitalization)
  Sender: FDA-Public Use
  Company Number: 8032813

PATIENT
  Age: 73 Year
  Sex: Female

DRUGS (7)
  1. XYZAL [Suspect]
     Indication: SEASONAL ALLERGY
     Dosage: 5 MG/D
     Dates: start: 20080513, end: 20080516
  2. CARAFATE [Concomitant]
  3. ULTRAM [Concomitant]
  4. ATROVENT [Concomitant]
  5. NASAL OXYGEN [Concomitant]
  6. REGLAN [Concomitant]
  7. DOXAZOSIN MESYLATE [Concomitant]

REACTIONS (2)
  - CAROTID ARTERY OCCLUSION [None]
  - LOSS OF CONSCIOUSNESS [None]
